FAERS Safety Report 17745089 (Version 1)
Quarter: 2020Q2

REPORT INFORMATION
  Report Type: Spontaneous
  Country: US (occurrence: US)
  Receive Date: 20200505
  Receipt Date: 20200505
  Transmission Date: 20200714
  Serious: Yes (Life-Threatening, Hospitalization)
  Sender: FDA-Public Use
  Company Number: None

PATIENT
  Age: 72 Year
  Sex: Male
  Weight: 94.6 kg

DRUGS (1)
  1. RIVAROXABAN [Suspect]
     Active Substance: RIVAROXABAN
     Indication: ATRIAL FIBRILLATION
     Route: 048

REACTIONS (6)
  - Lumbar vertebral fracture [None]
  - Cerebral haemorrhage [None]
  - Skull fractured base [None]
  - Road traffic accident [None]
  - Clavicle fracture [None]
  - Rib fracture [None]

NARRATIVE: CASE EVENT DATE: 20200504
